FAERS Safety Report 22076116 (Version 1)
Quarter: 2023Q1

REPORT INFORMATION
  Report Type: Report from Study
  Country: GB (occurrence: GB)
  Receive Date: 20230309
  Receipt Date: 20230309
  Transmission Date: 20230418
  Serious: Yes (Other)
  Sender: FDA-Public Use
  Company Number: GB-JNJFOC-20230300099

PATIENT

DRUGS (1)
  1. STELARA [Suspect]
     Active Substance: USTEKINUMAB
     Indication: Crohn^s disease
     Route: 058

REACTIONS (7)
  - Sepsis [Unknown]
  - Pyoderma gangrenosum [Unknown]
  - Psoriasis [Unknown]
  - Diarrhoea [Unknown]
  - Arthralgia [Unknown]
  - Rash [Unknown]
  - Dermatitis atopic [Unknown]
